FAERS Safety Report 5466767-9 (Version None)
Quarter: 2007Q3

REPORT INFORMATION
  Report Type: 
  Country: None (occurrence: None)
  Receive Date: 20070925
  Receipt Date: 20070911
  Transmission Date: 20080115
  Serious: Yes (Hospitalization)
  Sender: FDA-Public Use
  Company Number: FR-ELI_LILLY_AND_COMPANY-FR200706005015

PATIENT
  Age: 60 Year
  Sex: Male
  Weight: 60 kg

DRUGS (6)
  1. ZYPREXA [Suspect]
     Indication: SCHIZOPHRENIA, PARANOID TYPE
     Dosage: 15 MG, DAILY (1/D)
     Route: 048
     Dates: start: 20010101, end: 20070101
  2. ZYPREXA [Suspect]
     Dosage: 30 MG, DAILY (1/D)
     Dates: end: 20070501
  3. XANAX [Concomitant]
     Indication: SCHIZOPHRENIA
     Dosage: 0.25 MG, DAILY (1/D)
     Route: 048
     Dates: start: 20000701
  4. DEPAKOTE [Concomitant]
     Indication: SCHIZOPHRENIA
     Dosage: 500 MG, DAILY (1/D)
     Route: 048
     Dates: start: 20000701
  5. DIHYDROERGOTAMINE MESYLATE [Concomitant]
     Indication: BLOOD PRESSURE FLUCTUATION
     Route: 048
     Dates: start: 20030101
  6. DITROPAN XL [Concomitant]
     Indication: URINARY TRACT DISORDER
     Route: 048
     Dates: start: 20030101

REACTIONS (4)
  - CEREBRAL ATROPHY [None]
  - LOSS OF CONSCIOUSNESS [None]
  - MANIA [None]
  - OVERDOSE [None]
